FAERS Safety Report 26090374 (Version 1)
Quarter: 2025Q4

REPORT INFORMATION
  Report Type: Spontaneous
  Country: US (occurrence: US)
  Receive Date: 20251126
  Receipt Date: 20251126
  Transmission Date: 20260118
  Serious: Yes (Death, Hospitalization, Other)
  Sender: Steriscience PTE
  Company Number: US-STERISCIENCE B.V.-2025-ST-001628

PATIENT
  Age: 45 Year
  Sex: Female

DRUGS (15)
  1. SODIUM BICARBONATE [Suspect]
     Active Substance: SODIUM BICARBONATE
     Indication: Hyperkalaemia
     Dosage: UNK
     Route: 042
  2. SODIUM BICARBONATE [Suspect]
     Active Substance: SODIUM BICARBONATE
     Indication: Toxicity to various agents
  3. SODIUM ZIRCONIUM CYCLOSILICATE [Suspect]
     Active Substance: SODIUM ZIRCONIUM CYCLOSILICATE
     Indication: Hyperkalaemia
     Dosage: VIA OROGASTRIC TUBE
     Route: 065
  4. SODIUM ZIRCONIUM CYCLOSILICATE [Suspect]
     Active Substance: SODIUM ZIRCONIUM CYCLOSILICATE
     Indication: Toxicity to various agents
  5. CALCIUM CHLORIDE [Suspect]
     Active Substance: CALCIUM CHLORIDE
     Indication: Hyperkalaemia
     Dosage: UNK
     Route: 042
  6. CALCIUM CHLORIDE [Suspect]
     Active Substance: CALCIUM CHLORIDE
     Indication: Toxicity to various agents
  7. CALCIUM GLUCONATE [Suspect]
     Active Substance: CALCIUM GLUCONATE
     Indication: Hyperkalaemia
     Dosage: UNK
     Route: 042
  8. CALCIUM GLUCONATE [Suspect]
     Active Substance: CALCIUM GLUCONATE
     Indication: Toxicity to various agents
  9. INSULIN NOS [Suspect]
     Active Substance: INSULIN NOS
     Indication: Hyperkalaemia
     Dosage: UNK
     Route: 042
  10. INSULIN NOS [Suspect]
     Active Substance: INSULIN NOS
     Indication: Toxicity to various agents
  11. MAGNESIUM SULFATE [Suspect]
     Active Substance: MAGNESIUM SULFATE
     Indication: Hyperkalaemia
     Dosage: UNK
     Route: 042
  12. MAGNESIUM SULFATE [Suspect]
     Active Substance: MAGNESIUM SULFATE
     Indication: Toxicity to various agents
  13. FUROSEMIDE [Suspect]
     Active Substance: FUROSEMIDE
     Indication: Hyperkalaemia
     Dosage: UNK
     Route: 042
  14. FUROSEMIDE [Suspect]
     Active Substance: FUROSEMIDE
     Indication: Toxicity to various agents
  15. POTASSIUM CHLORIDE [Concomitant]
     Active Substance: POTASSIUM CHLORIDE
     Indication: Product used for unknown indication
     Dosage: CORRESPONDING TO AN ESTIMATED 5000 INDIVIDUAL SERVINGS AND 525 GRAMS OF ELEMENTAL POTASSIUM
     Route: 048

REACTIONS (1)
  - Drug ineffective for unapproved indication [Fatal]
